FAERS Safety Report 14825897 (Version 1)
Quarter: 2018Q2

REPORT INFORMATION
  Report Type: Spontaneous
  Country: US (occurrence: US)
  Receive Date: 20180430
  Receipt Date: 20180430
  Transmission Date: 20180711
  Serious: No
  Sender: FDA-Public Use
  Company Number: US-PFIZER INC-2018174780

PATIENT
  Sex: Male

DRUGS (1)
  1. ADVIL PM [Suspect]
     Active Substance: DIPHENHYDRAMINE CITRATE\IBUPROFEN
     Indication: INSOMNIA
     Dosage: UNK
     Dates: start: 20180424

REACTIONS (3)
  - Somnolence [Unknown]
  - Dizziness [Unknown]
  - Feeling drunk [Unknown]

NARRATIVE: CASE EVENT DATE: 20180425
